FAERS Safety Report 10267398 (Version 1)
Quarter: 2014Q2

REPORT INFORMATION
  Report Type: Spontaneous
  Country: US (occurrence: US)
  Receive Date: 20140630
  Receipt Date: 20140630
  Transmission Date: 20141212
  Serious: No
  Sender: FDA-Public Use
  Company Number: US-TEVA-490993USA

PATIENT
  Age: 26 Year
  Sex: Female
  Weight: 48.12 kg

DRUGS (1)
  1. PARAGARD 380A [Suspect]
     Indication: CONTRACEPTION
     Route: 015
     Dates: start: 20140304, end: 20140528

REACTIONS (3)
  - Device expulsion [Recovered/Resolved]
  - Pelvic pain [Unknown]
  - Vaginal haemorrhage [Unknown]
